FAERS Safety Report 13604532 (Version 1)
Quarter: 2017Q2

REPORT INFORMATION
  Report Type: Spontaneous
  Country: US (occurrence: US)
  Receive Date: 20170601
  Receipt Date: 20170601
  Transmission Date: 20170830
  Serious: Yes (Death)
  Sender: FDA-Public Use
  Company Number: None

PATIENT
  Age: 74 Year
  Sex: Male

DRUGS (1)
  1. CAPECITABINE 500MG TEVA PHARMACUETICALS [Suspect]
     Active Substance: CAPECITABINE
     Indication: COLON CANCER
     Dosage: 100MG EVERY 12 HOURS BY MOUTH
     Route: 048
     Dates: start: 201701, end: 201705

REACTIONS (1)
  - Death [None]

NARRATIVE: CASE EVENT DATE: 20170601
